FAERS Safety Report 8346381-8 (Version None)
Quarter: 2012Q2

REPORT INFORMATION
  Report Type: 
  Country: None (occurrence: None)
  Receive Date: 20120509
  Receipt Date: 20120430
  Transmission Date: 20120825
  Serious: Yes (Hospitalization, Other)
  Sender: FDA-Public Use
  Company Number: US-SANOFI-AVENTIS-2012SA020354

PATIENT
  Age: 59 Year
  Sex: Male

DRUGS (15)
  1. CARVEDILOL [Suspect]
  2. ALL OTHER THERAPEUTIC PRODUCTS [Concomitant]
  3. TORSEMIDE [Suspect]
  4. ANTITHROMBOTIC AGENTS [Concomitant]
  5. SPIRONOLACTONE [Suspect]
  6. ASPIRIN [Concomitant]
  7. DIURETICS [Concomitant]
  8. FUROSEMIDE [Suspect]
  9. CHOLESTEROL- AND TRIGLYCERIDE REDUCERS [Concomitant]
  10. BETA BLOCKING AGENTS [Concomitant]
  11. NITROGLYCERIN [Concomitant]
  12. BLINDED THERAPY [Suspect]
     Dates: start: 20110325, end: 20110708
  13. ANTITHROMBOTIC AGENTS [Concomitant]
  14. BLINDED THERAPY [Suspect]
     Dates: start: 20110927, end: 20111206
  15. EZETIMIBE [Concomitant]

REACTIONS (2)
  - IRRITABLE BOWEL SYNDROME [None]
  - RENAL FAILURE ACUTE [None]
